FAERS Safety Report 22263335 (Version 2)
Quarter: 2023Q2

REPORT INFORMATION
  Report Type: Spontaneous
  Country: US (occurrence: US)
  Receive Date: 20230428
  Receipt Date: 20230608
  Transmission Date: 20230721
  Serious: No
  Sender: FDA-Public Use
  Company Number: US-GSK-US2023AMR058121

PATIENT
  Sex: Female

DRUGS (1)
  1. ALBUTEROL SULFATE [Suspect]
     Active Substance: ALBUTEROL SULFATE
     Indication: Product used for unknown indication
     Dosage: UNK 90 MCG, 18G/200 METERED, 1X200D

REACTIONS (5)
  - COVID-19 [Unknown]
  - Foot operation [Unknown]
  - Incorrect dose administered by device [Unknown]
  - Product storage error [Unknown]
  - Product complaint [Unknown]
